FAERS Safety Report 12500232 (Version 1)
Quarter: 2016Q2

REPORT INFORMATION
  Report Type: Report from Study
  Country: CA (occurrence: CA)
  Receive Date: 20160627
  Receipt Date: 20160627
  Transmission Date: 20160815
  Serious: Yes (Other)
  Sender: FDA-Public Use
  Company Number: CA-JNJFOC-20160621174

PATIENT
  Age: 51 Year
  Sex: Female
  Weight: 36.74 kg

DRUGS (4)
  1. NOVO-GESIC [Concomitant]
     Route: 065
  2. REMICADE [Suspect]
     Active Substance: INFLIXIMAB
     Indication: ANKYLOSING SPONDYLITIS
     Route: 042
     Dates: start: 20140610
  3. VALACYCLOVIR [Concomitant]
     Active Substance: VALACYCLOVIR HYDROCHLORIDE
     Route: 065
  4. FENTANYL. [Concomitant]
     Active Substance: FENTANYL
     Route: 065

REACTIONS (3)
  - Off label use [Unknown]
  - Diverticulitis [Unknown]
  - Product use issue [Unknown]

NARRATIVE: CASE EVENT DATE: 20140610
